FAERS Safety Report 7533066-0 (Version None)
Quarter: 2011Q2

REPORT INFORMATION
  Report Type: 
  Country: None (occurrence: None)
  Receive Date: 20110608
  Receipt Date: 20110526
  Transmission Date: 20111010
  Serious: Yes (Hospitalization, Other)
  Sender: FDA-Public Use
  Company Number: US-ELI_LILLY_AND_COMPANY-US201105008705

PATIENT
  Sex: Female

DRUGS (8)
  1. PERCOCET [Concomitant]
  2. FORTEO [Suspect]
     Dosage: 20 UG, QD
  3. ASPIRIN [Concomitant]
     Dosage: 325 MG, UNK
  4. FERROUS SULFATE TAB [Concomitant]
  5. FORTEO [Suspect]
     Indication: OSTEOPOROSIS
     Dosage: 20 UG, QD
     Dates: start: 20110225
  6. COUMADIN [Concomitant]
  7. ULTRAM [Concomitant]
  8. CYCLOBENZAPRINE [Concomitant]

REACTIONS (10)
  - ABDOMINAL DISCOMFORT [None]
  - NAUSEA [None]
  - DECREASED APPETITE [None]
  - CRYING [None]
  - FEELING ABNORMAL [None]
  - NERVOUSNESS [None]
  - DEPRESSION [None]
  - KNEE ARTHROPLASTY [None]
  - DYSGEUSIA [None]
  - DRY MOUTH [None]
